FAERS Safety Report 8235365-6 (Version None)
Quarter: 2012Q1

REPORT INFORMATION
  Report Type: 
  Country: None (occurrence: None)
  Receive Date: 20120307
  Receipt Date: 20100222
  Transmission Date: 20120608
  Serious: Yes (Other)
  Sender: FDA-Public Use
  Company Number: PHEH2009US15952

PATIENT
  Age: 67 Year
  Sex: Female
  Weight: 67.9 kg

DRUGS (3)
  1. AFINITOR [Suspect]
     Indication: RENAL CELL CARCINOMA
     Dosage: 10 MG, QD, ORAL
     Route: 048
  2. NEXIUM [Concomitant]
  3. ACETAMINOPHEN [Concomitant]

REACTIONS (5)
  - DYSPNOEA [None]
  - PULMONARY TOXICITY [None]
  - PYREXIA [None]
  - COUGH [None]
  - PNEUMONIA PRIMARY ATYPICAL [None]
